FAERS Safety Report 12762588 (Version 1)
Quarter: 2016Q3

REPORT INFORMATION
  Report Type: Spontaneous
  Country: GB (occurrence: GB)
  Receive Date: 20160920
  Receipt Date: 20160920
  Transmission Date: 20161109
  Serious: Yes (Hospitalization, Other)
  Sender: FDA-Public Use
  Company Number: GB-PFIZER INC-2016435490

PATIENT
  Age: 61 Year
  Sex: Male

DRUGS (12)
  1. AMLODIPINE [Concomitant]
     Active Substance: AMLODIPINE BESYLATE
     Dosage: UNKNOWN
  2. PARACETAMOL [Concomitant]
     Active Substance: ACETAMINOPHEN
     Dosage: UNKNOWN
  3. TINZAPARIN [Concomitant]
     Active Substance: TINZAPARIN
     Dosage: UNKNOWN
  4. PABRINEX /01803001/ [Concomitant]
     Dosage: UNKNOWN
  5. THIAMINE. [Concomitant]
     Active Substance: THIAMINE
     Dosage: UNKNOWN
  6. AMITRIPTYLINE [Concomitant]
     Active Substance: AMITRIPTYLINE
     Dosage: UNKNOWN
  7. SENNA /00571902/ [Concomitant]
     Dosage: UNKNOWN
  8. IBUPROFEN. [Suspect]
     Active Substance: IBUPROFEN
     Dosage: 400 MG, 3X/DAY
     Route: 048
     Dates: start: 20160904, end: 20160907
  9. CHLORDIAZEPOXIDE. [Concomitant]
     Active Substance: CHLORDIAZEPOXIDE
     Dosage: UNKNOWN
  10. CODEINE [Concomitant]
     Active Substance: CODEINE
     Dosage: UNKNOWN
  11. DOCUSATE [Concomitant]
     Active Substance: DOCUSATE
     Dosage: UNKNOWN
  12. TRAMADOL. [Concomitant]
     Active Substance: TRAMADOL
     Dosage: UNKNOWN

REACTIONS (1)
  - Acute kidney injury [Not Recovered/Not Resolved]

NARRATIVE: CASE EVENT DATE: 20160907
